FAERS Safety Report 8582991 (Version 2)
Quarter: 2013Q1

REPORT INFORMATION
  Report Type: Spontaneous
  Country: MX (occurrence: MX)
  Receive Date: 20120529
  Receipt Date: 20130124
  Transmission Date: 20140127
  Serious: Yes (Hospitalization, Other)
  Sender: FDA-Public Use
  Company Number: PHHY2012MX045533

PATIENT
  Sex: Female

DRUGS (1)
  1. EXFORGE HCT [Suspect]
     Indication: HYPERTENSION
     Dosage: 1 DF (320/10/25MG) DAILY

REACTIONS (2)
  - Laryngeal cancer [Not Recovered/Not Resolved]
  - Blood pressure increased [Not Recovered/Not Resolved]
